FAERS Safety Report 15002584 (Version 2)
Quarter: 2018Q3

REPORT INFORMATION
  Report Type: Spontaneous
  Country: US (occurrence: US)
  Receive Date: 20180612
  Receipt Date: 20180719
  Transmission Date: 20181010
  Serious: No
  Sender: FDA-Public Use
  Company Number: US-BAYER-2018-108954

PATIENT
  Sex: Female

DRUGS (2)
  1. ALEVE [Suspect]
     Active Substance: NAPROXEN SODIUM
     Indication: PAIN
     Dosage: UNK
     Route: 048
     Dates: start: 20180602
  2. BAYER ASPIRIN [Suspect]
     Active Substance: ASPIRIN
     Indication: PAIN
     Dosage: 1/2 TO 1 TABLET AS NEEDED
     Route: 065

REACTIONS (4)
  - Constipation [Recovered/Resolved]
  - Drug ineffective [Unknown]
  - Drug ineffective [Unknown]
  - Extra dose administered [Unknown]

NARRATIVE: CASE EVENT DATE: 20180602
